FAERS Safety Report 18147368 (Version 3)
Quarter: 2021Q1

REPORT INFORMATION
  Report Type: Report from Study
  Country: US (occurrence: US)
  Receive Date: 20200813
  Receipt Date: 20210201
  Transmission Date: 20210419
  Serious: Yes (Death, Hospitalization)
  Sender: FDA-Public Use
  Company Number: US-KARYOPHARM-2020KPT000879

PATIENT
  Age: 77 Year
  Sex: Female
  Weight: 45.4 kg

DRUGS (4)
  1. ANORO ELLIPTA [Concomitant]
     Active Substance: UMECLIDINIUM BROMIDE\VILANTEROL TRIFENATATE
     Indication: RESPIRATORY DISTRESS
     Dosage: 1 DF, QD
     Route: 055
     Dates: start: 20200501
  2. SELINEXOR [Suspect]
     Active Substance: SELINEXOR
     Indication: NON-SMALL CELL LUNG CANCER
     Dosage: 60 MG, WEEKLY, ORAL
     Route: 048
     Dates: start: 20200729, end: 20200805
  3. ZOFRAN [Concomitant]
     Active Substance: ONDANSETRON HYDROCHLORIDE
     Indication: NAUSEA
     Dosage: 8 MG, PRN, ORAL
     Route: 048
     Dates: start: 20170612
  4. DOCETAXEL. [Suspect]
     Active Substance: DOCETAXEL
     Indication: NON-SMALL CELL LUNG CANCER
     Dosage: UNK, 1X/3 WEEKS
     Route: 042

REACTIONS (3)
  - Respiratory failure [Fatal]
  - Pleural effusion [Not Recovered/Not Resolved]
  - Nausea [Not Recovered/Not Resolved]

NARRATIVE: CASE EVENT DATE: 20200801
